FAERS Safety Report 6475819-6 (Version None)
Quarter: 2009Q4

REPORT INFORMATION
  Report Type: 
  Country: None (occurrence: None)
  Receive Date: 20091204
  Receipt Date: 20090106
  Transmission Date: 20100525
  Serious: No
  Sender: FDA-Public Use
  Company Number: US-AMGEN-KDL327065

PATIENT
  Sex: Female

DRUGS (2)
  1. ENBREL [Suspect]
     Indication: RHEUMATOID ARTHRITIS
     Route: 058
     Dates: start: 20040419
  2. UNSPECIFIED ANTICOAGULANT [Concomitant]

REACTIONS (3)
  - ARTHRALGIA [None]
  - HAEMORRHAGE URINARY TRACT [None]
  - HYPOKINESIA [None]
